FAERS Safety Report 8491902-8 (Version None)
Quarter: 2012Q3

REPORT INFORMATION
  Report Type: 
  Country: None (occurrence: None)
  Receive Date: 20120706
  Receipt Date: 20111202
  Transmission Date: 20120928
  Serious: No
  Sender: FDA-Public Use
  Company Number: US-GLAXOSMITHKLINE-A0956461A

PATIENT
  Age: 83 Year
  Sex: Male

DRUGS (2)
  1. FLOVENT [Suspect]
     Indication: DYSPNOEA
     Dosage: 110MCG TWICE PER DAY
     Route: 055
     Dates: start: 20111019
  2. OTHER MEDICATIONS [Concomitant]

REACTIONS (4)
  - COUGH [None]
  - DYSPNOEA [None]
  - INCREASED UPPER AIRWAY SECRETION [None]
  - PARANASAL SINUS HYPERSECRETION [None]
